FAERS Safety Report 9486550 (Version 1)
Quarter: 2013Q3

REPORT INFORMATION
  Report Type: Spontaneous
  Country: US (occurrence: None)
  Receive Date: 20130827
  Receipt Date: 20130827
  Transmission Date: 20140515
  Serious: Yes (Disabling)
  Sender: FDA-Public Use
  Company Number: None

PATIENT
  Age: 59 Year
  Sex: Female
  Weight: 74.84 kg

DRUGS (1)
  1. ANASTROZOLE [Suspect]
     Indication: BREAST CANCER
     Route: 048

REACTIONS (5)
  - Local swelling [None]
  - Back pain [None]
  - Abasia [None]
  - Retinal disorder [None]
  - Vascular occlusion [None]
